FAERS Safety Report 17322283 (Version 2)
Quarter: 2020Q1

REPORT INFORMATION
  Report Type: Spontaneous
  Country: DE (occurrence: DE)
  Receive Date: 20200127
  Receipt Date: 20200207
  Transmission Date: 20200409
  Serious: Yes (Other)
  Sender: FDA-Public Use
  Company Number: DE-AMGEN-DEUSP2020010861

PATIENT
  Age: 91 Year
  Sex: Female

DRUGS (2)
  1. ETANERCEPT [Suspect]
     Active Substance: ETANERCEPT
     Dosage: UNK
     Route: 065
     Dates: start: 201910
  2. ETANERCEPT [Suspect]
     Active Substance: ETANERCEPT
     Indication: PRODUCT USED FOR UNKNOWN INDICATION
     Dosage: UNK
     Route: 065
     Dates: start: 201408, end: 201809

REACTIONS (3)
  - Cervical vertebral fracture [Unknown]
  - Fall [Unknown]
  - Pelvic fracture [Unknown]

NARRATIVE: CASE EVENT DATE: 201703
